FAERS Safety Report 23079848 (Version 1)
Quarter: 2023Q4

REPORT INFORMATION
  Report Type: Spontaneous
  Country: CH (occurrence: CH)
  Receive Date: 20231018
  Receipt Date: 20231018
  Transmission Date: 20240110
  Serious: Yes (Life-Threatening, Hospitalization, Other)
  Sender: FDA-Public Use
  Company Number: CH-SM-2023-16849

PATIENT
  Age: 52 Year
  Sex: Female
  Weight: 60 kg

DRUGS (2)
  1. BOTOX [Suspect]
     Active Substance: ONABOTULINUMTOXINA
     Indication: Migraine
     Dosage: TIME INTERVAL: AS NECESSARY: 2 INJECTION SESSIONS IN TOTAL
     Route: 065
     Dates: start: 20230822, end: 20230822
  2. BOTOX [Suspect]
     Active Substance: ONABOTULINUMTOXINA
     Indication: Migraine
     Dosage: TIME INTERVAL: AS NECESSARY: 2 INJECTION SESSIONS IN TOTAL
     Route: 065
     Dates: start: 202306, end: 202306

REACTIONS (10)
  - Botulism [Not Recovered/Not Resolved]
  - Muscular weakness [Recovered/Resolved]
  - Diplopia [Not Recovered/Not Resolved]
  - Dizziness [Recovering/Resolving]
  - Dysphagia [Not Recovered/Not Resolved]
  - Photophobia [Not Recovered/Not Resolved]
  - Dry mouth [Not Recovered/Not Resolved]
  - Tinnitus [Not Recovered/Not Resolved]
  - Muscle spasms [Recovered/Resolved]
  - Dyspnoea [Not Recovered/Not Resolved]

NARRATIVE: CASE EVENT DATE: 20230601
